FAERS Safety Report 9765245 (Version 1)
Quarter: 2013Q4

REPORT INFORMATION
  Report Type: Spontaneous
  Country: US (occurrence: US)
  Receive Date: 20131217
  Receipt Date: 20131217
  Transmission Date: 20140711
  Serious: No
  Sender: FDA-Public Use
  Company Number: US-GLAXOSMITHKLINE-A1004057A

PATIENT
  Age: 66 Year
  Sex: Male
  Weight: 68.6 kg

DRUGS (7)
  1. VOTRIENT [Suspect]
     Indication: RENAL CELL CARCINOMA
     Dosage: 800MG PER DAY
     Route: 048
     Dates: start: 20121105, end: 20121207
  2. ALLOPURINOL [Concomitant]
  3. OXYCODONE [Concomitant]
  4. AMLODIPINE [Concomitant]
  5. LUMIGAN [Concomitant]
  6. ZOFRAN [Concomitant]
  7. RADIATION TREATMENT [Concomitant]
     Dates: start: 20121116

REACTIONS (8)
  - Nausea [Recovered/Resolved]
  - Liver disorder [Recovered/Resolved]
  - Blood albumin decreased [Recovered/Resolved]
  - Alanine aminotransferase increased [Recovered/Resolved]
  - Aspartate aminotransferase increased [Recovered/Resolved]
  - Blood alkaline phosphatase increased [Recovered/Resolved]
  - Blood bilirubin increased [Recovered/Resolved]
  - Protein total decreased [Recovered/Resolved]
